FAERS Safety Report 14308763 (Version 2)
Quarter: 2018Q3

REPORT INFORMATION
  Report Type: Spontaneous
  Country: US (occurrence: US)
  Receive Date: 20171220
  Receipt Date: 20180730
  Transmission Date: 20181010
  Serious: No
  Sender: FDA-Public Use
  Company Number: US-PFIZER INC-2017538070

PATIENT
  Age: 56 Year
  Sex: Female
  Weight: 98.41 kg

DRUGS (6)
  1. SOVALDI [Concomitant]
     Active Substance: SOFOSBUVIR
     Dosage: UNK
  2. RIBAVIRIN. [Concomitant]
     Active Substance: RIBAVIRIN
     Dosage: UNK
  3. PARAPLATIN [Concomitant]
     Active Substance: CARBOPLATIN
     Indication: CHEMOTHERAPY
     Dosage: UNK
  4. ARIMIDEX [Concomitant]
     Active Substance: ANASTROZOLE
     Indication: HORMONE THERAPY
     Dosage: UNK
     Dates: start: 2015
  5. NORVASC [Concomitant]
     Active Substance: AMLODIPINE BESYLATE
     Dosage: UNK
  6. DOCETAXEL. [Suspect]
     Active Substance: DOCETAXEL
     Indication: BREAST CANCER METASTATIC
     Dosage: 75 MG, CYCLIC (EVERY 3 WEEKS FOR 6 CYCLES)
     Dates: start: 20141021, end: 20150217

REACTIONS (5)
  - Hair texture abnormal [Not Recovered/Not Resolved]
  - Alopecia [Not Recovered/Not Resolved]
  - Madarosis [Not Recovered/Not Resolved]
  - Hair disorder [Not Recovered/Not Resolved]
  - Hair colour changes [Not Recovered/Not Resolved]

NARRATIVE: CASE EVENT DATE: 201508
